FAERS Safety Report 22650786 (Version 1)
Quarter: 2023Q2

REPORT INFORMATION
  Report Type: Spontaneous
  Country: GB (occurrence: GB)
  Receive Date: 20230628
  Receipt Date: 20230628
  Transmission Date: 20230722
  Serious: Yes (Other)
  Sender: FDA-Public Use
  Company Number: GB-MHRA-TPP41644349C10440251YC1686506442549

PATIENT
  Age: 86 Year
  Sex: Female
  Weight: 84 kg

DRUGS (1)
  1. CODEINE [Suspect]
     Active Substance: CODEINE
     Indication: Ill-defined disorder
     Dosage: UNK
     Route: 065
     Dates: start: 20230611

REACTIONS (1)
  - Clonic convulsion [Unknown]

NARRATIVE: CASE EVENT DATE: 20230611
